FAERS Safety Report 24648966 (Version 1)
Quarter: 2024Q4

REPORT INFORMATION
  Report Type: Spontaneous
  Country: US (occurrence: US)
  Receive Date: 20241121
  Receipt Date: 20241121
  Transmission Date: 20250115
  Serious: No
  Sender: LUNDBECK
  Company Number: US-LUNDBECK-DKLU4005985

PATIENT

DRUGS (3)
  1. NORTHERA [Suspect]
     Active Substance: DROXIDOPA
     Indication: Hypotension
     Dosage: 300 MILLIGRAM
     Route: 065
  2. NORTHERA [Suspect]
     Active Substance: DROXIDOPA
     Indication: Parkinson^s disease
  3. NORTHERA [Suspect]
     Active Substance: DROXIDOPA
     Indication: Syncope

REACTIONS (2)
  - Accidental overdose [Not Recovered/Not Resolved]
  - Product administration error [Unknown]
